FAERS Safety Report 11092932 (Version 1)
Quarter: 2015Q2

REPORT INFORMATION
  Report Type: Spontaneous
  Country: US (occurrence: None)
  Receive Date: 20150504
  Receipt Date: 20150504
  Transmission Date: 20150821
  Serious: Yes (Other)
  Sender: FDA-Public Use
  Company Number: 001911253A

PATIENT
  Sex: Female

DRUGS (6)
  1. PROACTIV PLUS PORE TARGETING TREATMENT [Suspect]
     Active Substance: BENZOYL PEROXIDE
     Indication: ACNE
     Dosage: 1-2X, DERMAL
     Dates: start: 20150316, end: 20150319
  2. EPIPEN [Concomitant]
     Active Substance: EPINEPHRINE
  3. PROACTIVPLUS SKIN SMOOTHING EXFOLIATOR [Suspect]
     Active Substance: BENZOYL PEROXIDE
     Indication: ACNE
     Dosage: 1-2X, DERMAL
     Dates: start: 20150316, end: 20150319
  4. CLARITIN [Concomitant]
     Active Substance: LORATADINE
  5. PROACTIV PLUS COMPLEXION PERFECTING HYDRATOR [Suspect]
     Active Substance: SALICYLIC ACID
     Indication: ACNE
     Dates: start: 20150316, end: 20150319
  6. ALLERGY MEDICATION [Concomitant]
     Active Substance: DIPHENHYDRAMINE HYDROCHLORIDE

REACTIONS (2)
  - Urticaria [None]
  - Acne [None]

NARRATIVE: CASE EVENT DATE: 20150319
